FAERS Safety Report 12958948 (Version 1)
Quarter: 2016Q4

REPORT INFORMATION
  Report Type: Report from Study
  Country: AU (occurrence: AU)
  Receive Date: 20161121
  Receipt Date: 20161121
  Transmission Date: 20170207
  Serious: Yes (Death)
  Sender: FDA-Public Use
  Company Number: AU-CIPLA LTD.-2016GB21250

PATIENT

DRUGS (2)
  1. ANASTROZOLE. [Suspect]
     Active Substance: ANASTROZOLE
     Indication: PROPHYLACTIC CHEMOTHERAPY
     Dosage: 1 MG, QD
     Route: 048
  2. PLACEBO [Suspect]
     Active Substance: UNSPECIFIED INGREDIENT
     Indication: PROPHYLACTIC CHEMOTHERAPY
     Dosage: UNK
     Route: 048

REACTIONS (1)
  - Death [Fatal]
